FAERS Safety Report 7617986-4 (Version None)
Quarter: 2011Q3

REPORT INFORMATION
  Report Type: 
  Country: None (occurrence: None)
  Receive Date: 20110718
  Receipt Date: 20110705
  Transmission Date: 20111222
  Serious: Yes (Other)
  Sender: FDA-Public Use
  Company Number: PHHY2011BR60525

PATIENT
  Sex: Female

DRUGS (1)
  1. RASILEZ AMLO [Suspect]

REACTIONS (1)
  - PLEURAL EFFUSION [None]
